FAERS Safety Report 20088689 (Version 1)
Quarter: 2021Q4

REPORT INFORMATION
  Report Type: Report from Study
  Country: GB (occurrence: GB)
  Receive Date: 20211119
  Receipt Date: 20211119
  Transmission Date: 20220303
  Serious: Yes (Hospitalization, Other)
  Sender: FDA-Public Use
  Company Number: GB-PFIZER INC-202101554206

PATIENT
  Age: 60 Year
  Sex: Female
  Weight: 114 kg

DRUGS (2)
  1. ETANERCEPT [Suspect]
     Active Substance: ETANERCEPT
     Indication: Rheumatoid arthritis
     Dosage: UNK
     Route: 058
     Dates: start: 20081126, end: 20150330
  2. HYDROXYCHLOROQUINE [Concomitant]
     Active Substance: HYDROXYCHLOROQUINE
     Dosage: UNK
     Dates: start: 20120616

REACTIONS (2)
  - Haemophagocytic lymphohistiocytosis [Unknown]
  - Lymphocytic leukaemia [Unknown]

NARRATIVE: CASE EVENT DATE: 20160215
